FAERS Safety Report 24882399 (Version 1)
Quarter: 2025Q1

REPORT INFORMATION
  Report Type: Spontaneous
  Country: US (occurrence: US)
  Receive Date: 20250124
  Receipt Date: 20250124
  Transmission Date: 20250408
  Serious: Yes (Death, Hospitalization, Other)
  Sender: AMGEN
  Company Number: US-AMGEN-USASP2025012129

PATIENT

DRUGS (1)
  1. PREDNISONE [Suspect]
     Active Substance: PREDNISONE
     Indication: Adrenal gland cancer metastatic
     Route: 065

REACTIONS (6)
  - Death [Fatal]
  - Adrenal gland cancer metastatic [Unknown]
  - Pain [Unknown]
  - Nausea [Unknown]
  - Therapy partial responder [Unknown]
  - Off label use [Unknown]
